FAERS Safety Report 5752021-4 (Version None)
Quarter: 2008Q2

REPORT INFORMATION
  Report Type: 
  Country: None (occurrence: None)
  Receive Date: 20080527
  Receipt Date: 20080513
  Transmission Date: 20081010
  Serious: Yes (Disabling)
  Sender: FDA-Public Use
  Company Number: 8032620

PATIENT
  Age: 12 Year
  Sex: Male

DRUGS (1)
  1. KEPPRA [Suspect]

REACTIONS (3)
  - ACTIVITIES OF DAILY LIVING IMPAIRED [None]
  - DYSKINESIA [None]
  - SPEECH DISORDER [None]
